FAERS Safety Report 9713911 (Version 2)
Quarter: 2014Q1

REPORT INFORMATION
  Report Type: Spontaneous
  Country: US (occurrence: US)
  Receive Date: 20131126
  Receipt Date: 20140121
  Transmission Date: 20141002
  Serious: No
  Sender: FDA-Public Use
  Company Number: US-B.I. PHARMACEUTICALS,INC./RIDGEFIELD-2013-BI-37559BP

PATIENT
  Age: 92 Year
  Sex: Female
  Weight: 58.96 kg

DRUGS (6)
  1. COMBIVENT [Suspect]
     Indication: CHRONIC OBSTRUCTIVE PULMONARY DISEASE
     Dosage: DOSE PER APPLICATION: 20 MCG / 100 MCG; DAILY DOSE: 160 MCG / 800 MCG
     Route: 055
     Dates: start: 201310
  2. COMBIVENT [Suspect]
     Dosage: DOSE PER APPLICATION: 20 MCG / 100 MCG; DAILY DOSE: 120 MCG / 600 MCG
     Route: 055
     Dates: start: 201310
  3. PULMICORT [Concomitant]
     Indication: ASTHMA
     Dosage: STRENGTH: 1 INHALATION; DAILY DOSE: 2 INHALATIONS
     Route: 055
  4. SEREVENT [Concomitant]
     Indication: CHRONIC OBSTRUCTIVE PULMONARY DISEASE
     Dosage: STRENGTH: 1 INHALATION; DAILY DOSE: 2 INHALATIONS
     Route: 055
  5. FLUTICASONE [Concomitant]
     Dosage: FORMULATION: NASAL SPRAY STRENGTH: 1 SPRAY EACH NOSTRIL; DAILY DOSE: 2 SPRAYS EACH NOSTRIL
     Route: 045
  6. SPIRIVA [Concomitant]
     Indication: CHRONIC OBSTRUCTIVE PULMONARY DISEASE
     Dosage: 18 MCG
     Route: 055
     Dates: start: 201309

REACTIONS (3)
  - Choking [Not Recovered/Not Resolved]
  - Prescribed overdose [Not Recovered/Not Resolved]
  - Drug administration error [Not Recovered/Not Resolved]
